FAERS Safety Report 7922719-8 (Version None)
Quarter: 2011Q4

REPORT INFORMATION
  Report Type: 
  Country: None (occurrence: None)
  Receive Date: 20111117
  Receipt Date: 20110621
  Transmission Date: 20120403
  Serious: No
  Sender: FDA-Public Use
  Company Number: US-ALLERGAN-1108404US

PATIENT
  Age: 70 Year
  Sex: Female

DRUGS (3)
  1. COMBIGAN [Suspect]
     Indication: PRODUCT USED FOR UNKNOWN INDICATION
     Dosage: 1 GTT, BID
     Dates: start: 20110501
  2. GLIPIZIDE [Concomitant]
     Dosage: 5 MG, UNK
     Route: 048
  3. SIMVASTATIN [Concomitant]
     Dosage: UNK
     Route: 048

REACTIONS (2)
  - FOREIGN BODY SENSATION IN EYES [None]
  - EYE PRURITUS [None]
